FAERS Safety Report 7815235-5 (Version None)
Quarter: 2011Q4

REPORT INFORMATION
  Report Type: 
  Country: None (occurrence: None)
  Receive Date: 20111014
  Receipt Date: 20111007
  Transmission Date: 20120403
  Serious: Yes (Hospitalization)
  Sender: FDA-Public Use
  Company Number: JP-JNJFOC-20110311693

PATIENT
  Sex: Female
  Weight: 55 kg

DRUGS (6)
  1. RHEUMATREX [Suspect]
     Route: 048
     Dates: start: 20100305, end: 20110319
  2. GOLIMUMAB [Suspect]
     Indication: RHEUMATOID ARTHRITIS
     Route: 058
     Dates: start: 20090212, end: 20110310
  3. CELECOXIB [Concomitant]
     Indication: RHEUMATOID ARTHRITIS
     Route: 048
     Dates: start: 20100721
  4. LANSOPRAZOLE [Concomitant]
     Indication: GASTROINTESTINAL DISORDER THERAPY
     Route: 048
     Dates: start: 20100721
  5. FOLIC ACID [Concomitant]
     Indication: PROPHYLAXIS
     Route: 048
     Dates: start: 20100403, end: 20110320
  6. RHEUMATREX [Suspect]
     Indication: RHEUMATOID ARTHRITIS
     Route: 048
     Dates: start: 20091016

REACTIONS (4)
  - WHITE BLOOD CELL COUNT DECREASED [None]
  - URTICARIA [None]
  - PYELONEPHRITIS [None]
  - VOMITING [None]
